FAERS Safety Report 10086241 (Version 1)
Quarter: 2014Q2

REPORT INFORMATION
  Report Type: Spontaneous
  Country: US (occurrence: None)
  Receive Date: 20140417
  Receipt Date: 20140417
  Transmission Date: 20141212
  Serious: Yes (Hospitalization)
  Sender: FDA-Public Use
  Company Number: None

PATIENT
  Age: 42 Year
  Sex: Female
  Weight: 68.04 kg

DRUGS (1)
  1. CIPROFLOXACIN HCL [Suspect]
     Indication: URINARY TRACT INFECTION
     Dates: start: 20140313, end: 20140320

REACTIONS (20)
  - Migraine [None]
  - Muscle disorder [None]
  - Burning sensation [None]
  - Visceral pain [None]
  - Visual impairment [None]
  - Nausea [None]
  - Constipation [None]
  - Panic attack [None]
  - Anxiety [None]
  - Hallucination [None]
  - Dizziness [None]
  - Pain [None]
  - Pain [None]
  - Scleral discolouration [None]
  - Paraesthesia [None]
  - Paraesthesia [None]
  - Fatigue [None]
  - Arthralgia [None]
  - Gait disturbance [None]
  - Dysstasia [None]
